FAERS Safety Report 24463468 (Version 1)
Quarter: 2024Q4

REPORT INFORMATION
  Report Type: Report from Study
  Country: US (occurrence: US)
  Receive Date: 20241018
  Receipt Date: 20241018
  Transmission Date: 20250114
  Serious: No
  Sender: ROCHE
  Company Number: US-ROCHE-3292286

PATIENT
  Age: 61 Year
  Sex: Female

DRUGS (9)
  1. XOLAIR [Suspect]
     Active Substance: OMALIZUMAB
     Indication: Chronic spontaneous urticaria
     Dosage: INJECT 300MG SUBCUTANEOUSLY EVERY 8 WEEK(S)
     Route: 058
  2. XOLAIR [Suspect]
     Active Substance: OMALIZUMAB
     Indication: Idiopathic urticaria
     Route: 058
  3. XOLAIR [Suspect]
     Active Substance: OMALIZUMAB
     Indication: Angioedema
  4. MONTELUKAST SODIUM [Concomitant]
     Active Substance: MONTELUKAST SODIUM
     Dosage: 10 MG TABLET ORALLY ONCE A DAY
  5. PREDNISOLONE [Concomitant]
     Active Substance: PREDNISOLONE
     Dosage: 15 MG/5ML 3 TSP (15 ML) ORALLY EVERY 6 HOURS AS NEEDED FOR ALLERGIC REACTIONS 30 DAY(S), 6 OUNCE
  6. TRIAMCINOLONE ACETONIDE [Concomitant]
     Active Substance: TRIAMCINOLONE ACETONIDE
     Dosage: 0.1 % 1 APPLICATION AFFECTED AREA WITH RASH EXTERNALLY TWICE A DAY AS NEEDED 30 DAYS,80 GRAM WITH?RE
  7. EPINEPHRINE [Concomitant]
     Active Substance: EPINEPHRINE
     Dosage: 03 MG/0.3ML AS DIRECTED INJECTION ONCE FOR SEVERE ALLERGIC REACTION; MAY REPEAT AFTER 10 MINUTES IF
  8. FLONASE [Concomitant]
     Active Substance: FLUTICASONE PROPIONATE
     Dosage: 50 MCG/ACT 1-2 SPRAYS IN EACH NOSTRIL NASALLY ONCE A DAY
  9. HYDROXYZINE HYDROCHLORIDE [Concomitant]
     Active Substance: HYDROXYZINE HYDROCHLORIDE
     Dosage: 50 MG 1 TABLET AS NEEDED ORALLY DAILY AT BED TIMES, 30 DAYS,30, REFILLS: 3

REACTIONS (2)
  - Off label use [Unknown]
  - Paraesthesia [Unknown]
